FAERS Safety Report 22926581 (Version 28)
Quarter: 2025Q2

REPORT INFORMATION
  Report Type: Report from Study
  Country: CA (occurrence: CA)
  Receive Date: 20230909
  Receipt Date: 20250502
  Transmission Date: 20250717
  Serious: Yes (Hospitalization, Other)
  Sender: SANDOZ
  Company Number: CA-002147023-NVSC2022CA109965

PATIENT
  Age: 83 Year
  Sex: Female

DRUGS (19)
  1. ERELZI [Suspect]
     Active Substance: ETANERCEPT-SZZS
     Route: 058
     Dates: start: 20221103
  2. ERELZI [Suspect]
     Active Substance: ETANERCEPT-SZZS
     Dosage: 50 MG, QW
     Route: 058
     Dates: start: 20210511
  3. ERELZI [Suspect]
     Active Substance: ETANERCEPT-SZZS
     Indication: Rheumatoid arthritis
     Dosage: 50 MG, QW, STRENGTH: 50 MG/ML
     Route: 058
     Dates: start: 20210511
  4. ERELZI [Suspect]
     Active Substance: ETANERCEPT-SZZS
     Route: 058
     Dates: start: 20220831
  5. ERELZI [Suspect]
     Active Substance: ETANERCEPT-SZZS
     Route: 058
  6. ERELZI [Suspect]
     Active Substance: ETANERCEPT-SZZS
     Route: 058
     Dates: start: 20230601
  7. ERELZI [Suspect]
     Active Substance: ETANERCEPT-SZZS
     Route: 058
     Dates: start: 20210511
  8. ERELZI [Suspect]
     Active Substance: ETANERCEPT-SZZS
     Route: 058
     Dates: start: 20231025
  9. ERELZI [Suspect]
     Active Substance: ETANERCEPT-SZZS
     Dosage: 50 MG, WEEKLY
     Route: 058
     Dates: start: 20240425
  10. ERELZI [Suspect]
     Active Substance: ETANERCEPT-SZZS
     Dosage: 50 MG, QW
     Route: 058
  11. ERELZI [Suspect]
     Active Substance: ETANERCEPT-SZZS
     Dosage: 50 MG, QW, 50MG/ML (PRE-FILLED SYRINGE)
     Route: 058
     Dates: start: 20240612
  12. ERELZI [Suspect]
     Active Substance: ETANERCEPT-SZZS
     Dosage: 50 MG, QW
     Route: 058
     Dates: start: 20220509
  13. ERELZI [Suspect]
     Active Substance: ETANERCEPT-SZZS
     Dosage: 50 MG, QW
     Route: 058
     Dates: start: 20250428
  14. ERELZI [Suspect]
     Active Substance: ETANERCEPT-SZZS
     Dosage: 50 MG, QW (PRE-FILLED SYRINGE)
     Route: 058
  15. ERELZI [Suspect]
     Active Substance: ETANERCEPT-SZZS
     Route: 058
     Dates: start: 20211111
  16. ERELZI [Suspect]
     Active Substance: ETANERCEPT-SZZS
     Route: 058
     Dates: start: 20230216
  17. ERELZI [Suspect]
     Active Substance: ETANERCEPT-SZZS
     Route: 058
  18. PLAQUENIL [Concomitant]
     Active Substance: HYDROXYCHLOROQUINE SULFATE
     Indication: Product used for unknown indication
     Dosage: UNK, QD
     Route: 048
     Dates: start: 200004
  19. SULFASALAZINE [Concomitant]
     Active Substance: SULFASALAZINE
     Indication: Product used for unknown indication
     Dosage: UNK, BID
     Route: 048
     Dates: start: 200406

REACTIONS (45)
  - Hip fracture [Unknown]
  - Fall [Unknown]
  - Polyarthritis [Unknown]
  - Pneumonia [Not Recovered/Not Resolved]
  - Hospitalisation [Not Recovered/Not Resolved]
  - Tooth disorder [Unknown]
  - Musculoskeletal stiffness [Unknown]
  - Pain in extremity [Unknown]
  - Arthralgia [Unknown]
  - Rheumatoid arthritis [Unknown]
  - Fatigue [Unknown]
  - Drug intolerance [Recovered/Resolved]
  - Headache [Unknown]
  - Musculoskeletal disorder [Unknown]
  - Weight decreased [Unknown]
  - Nasal congestion [Recovered/Resolved]
  - Fine motor skill dysfunction [Unknown]
  - Somnolence [Unknown]
  - Depression [Unknown]
  - Muscular weakness [Unknown]
  - Constipation [Unknown]
  - Head injury [Unknown]
  - Contusion [Unknown]
  - Pain [Unknown]
  - Productive cough [Unknown]
  - Influenza like illness [Not Recovered/Not Resolved]
  - Arthralgia [Unknown]
  - Asthenia [Not Recovered/Not Resolved]
  - Chills [Unknown]
  - Malaise [Recovering/Resolving]
  - Fatigue [Not Recovered/Not Resolved]
  - Nasopharyngitis [Recovered/Resolved]
  - Injection site pruritus [Recovered/Resolved]
  - Injection site pain [Unknown]
  - Headache [Recovered/Resolved]
  - Diarrhoea [Unknown]
  - Nasopharyngitis [Unknown]
  - Dizziness [Unknown]
  - Abdominal pain upper [Unknown]
  - Injection site warmth [Unknown]
  - Influenza [Unknown]
  - General physical health deterioration [Unknown]
  - Intentional dose omission [Unknown]
  - Inappropriate schedule of product administration [Unknown]
  - Product dose omission issue [Unknown]

NARRATIVE: CASE EVENT DATE: 20220601
